FAERS Safety Report 22149666 (Version 1)
Quarter: 2023Q1

REPORT INFORMATION
  Report Type: Other
  Country: CA (occurrence: None)
  Receive Date: 20230329
  Receipt Date: 20230329
  Transmission Date: 20230417
  Serious: Yes (Death)
  Sender: FDA-Public Use
  Company Number: CA-ROCHE-3318948

PATIENT
  Age: 72 Year
  Sex: Male

DRUGS (1)
  1. VABYSMO [Suspect]
     Active Substance: FARICIMAB-SVOA
     Indication: Diabetic retinal oedema
     Dosage: 6MG/0.05ML
     Route: 050
     Dates: start: 20221011, end: 202212

REACTIONS (1)
  - Death [Fatal]

NARRATIVE: CASE EVENT DATE: 20230131
